FAERS Safety Report 8088307-0 (Version None)
Quarter: 2012Q1

REPORT INFORMATION
  Report Type: 
  Country: None (occurrence: None)
  Receive Date: 20120128
  Receipt Date: 20110422
  Transmission Date: 20120608
  Serious: No
  Sender: FDA-Public Use
  Company Number: US-ABBOTT-11P-163-0721304-00

PATIENT
  Age: 56 Year
  Sex: Male

DRUGS (9)
  1. ZOLOFT [Concomitant]
     Indication: COLITIS ULCERATIVE
  2. ZANTAC [Concomitant]
     Indication: GASTROOESOPHAGEAL REFLUX DISEASE
     Dosage: TAKES OCCASIONALLY
  3. ENTOCORT EC [Concomitant]
     Indication: PRODUCT USED FOR UNKNOWN INDICATION
  4. ACETAMINOPHEN [Concomitant]
     Indication: SINUS HEADACHE
  5. HUMIRA [Suspect]
     Indication: COLITIS ULCERATIVE
     Dosage: LOADING DOSE
     Dates: start: 20110413
  6. COLAZAL [Concomitant]
     Indication: PRODUCT USED FOR UNKNOWN INDICATION
  7. VALTREX [Concomitant]
     Indication: ORAL HERPES
  8. CLARITIN [Concomitant]
     Indication: HYPERSENSITIVITY
  9. CANASA [Concomitant]
     Indication: INFLAMMATION

REACTIONS (1)
  - INJECTION SITE PAIN [None]
